FAERS Safety Report 6796370-X (Version None)
Quarter: 2010Q2

REPORT INFORMATION
  Report Type: 
  Country: None (occurrence: None)
  Receive Date: 20100611
  Receipt Date: 20100607
  Transmission Date: 20101027
  Serious: Yes (Other)
  Sender: FDA-Public Use
  Company Number: GB-IGSA-IG679

PATIENT
  Age: 78 Year
  Sex: Male

DRUGS (10)
  1. FLEBOGAMMA 5% DIF [Suspect]
     Indication: CHRONIC LYMPHOCYTIC LEUKAEMIA
     Dosage: 50 G, IV
     Route: 042
     Dates: start: 20100331
  2. ACYCLOVIR [Concomitant]
  3. CIPROFLOXACIN [Concomitant]
  4. CORSODYL (CLORHEXIDINE DIGLUCONATE SOL) [Concomitant]
  5. CYCLOPHOSPHAMIDE (P.O 0.5 MG) [Concomitant]
  6. FLUCONAZOLE [Concomitant]
  7. FLUDARABINE (IV 0.08 MG) [Concomitant]
  8. HYDROCORTISONE [Concomitant]
  9. OMEPRAZOLE [Concomitant]
  10. RITUXIMAB (IV 200 MG) [Concomitant]

REACTIONS (1)
  - HAEMORRHAGE INTRACRANIAL [None]
